FAERS Safety Report 13206094 (Version 1)
Quarter: 2017Q1

REPORT INFORMATION
  Report Type: Spontaneous
  Country: US (occurrence: US)
  Receive Date: 20170209
  Receipt Date: 20170209
  Transmission Date: 20170428
  Serious: Yes (Other)
  Sender: FDA-Public Use
  Company Number: US-ASTRAZENECA-2017SE11498

PATIENT
  Age: 691 Month
  Sex: Female
  Weight: 76.2 kg

DRUGS (11)
  1. BRILINTA [Suspect]
     Active Substance: TICAGRELOR
     Indication: STENT PLACEMENT
     Route: 048
     Dates: start: 20151119
  2. VALSART HTCZ [Concomitant]
     Indication: BLOOD PRESSURE ABNORMAL
     Dosage: 160 AND 12.5 MG, DAILY
     Route: 048
     Dates: start: 20151119
  3. ATORVASTATIN [Concomitant]
     Active Substance: ATORVASTATIN
     Indication: BLOOD CHOLESTEROL
     Route: 048
     Dates: start: 20151119
  4. SPINAL INJECTION [Concomitant]
     Dates: start: 201606
  5. GABAPENTIN. [Concomitant]
     Active Substance: GABAPENTIN
     Indication: NEURALGIA
  6. BRILINTA [Suspect]
     Active Substance: TICAGRELOR
     Indication: STENT PLACEMENT
     Route: 048
     Dates: start: 20170115
  7. BRILINTA [Suspect]
     Active Substance: TICAGRELOR
     Indication: STENT PLACEMENT
     Route: 048
  8. GABAPENTIN. [Concomitant]
     Active Substance: GABAPENTIN
     Indication: BACK PAIN
  9. NITROGLYCERIN. [Concomitant]
     Active Substance: NITROGLYCERIN
     Indication: CHEST PAIN
  10. BABY ASPIRIN [Concomitant]
     Active Substance: ASPIRIN
     Indication: ILL-DEFINED DISORDER
     Route: 048
     Dates: start: 20151119
  11. METOPROLOL TARTARATE [Suspect]
     Active Substance: METOPROLOL TARTRATE
     Indication: HEART RATE ABNORMAL
     Route: 048
     Dates: start: 20151119

REACTIONS (7)
  - Chest pain [Unknown]
  - Intentional product misuse [Unknown]
  - Heart rate increased [Unknown]
  - Off label use [Unknown]
  - Back pain [Unknown]
  - Drug dose omission [Unknown]
  - Coronary artery perforation [Unknown]

NARRATIVE: CASE EVENT DATE: 201503
